FAERS Safety Report 25940026 (Version 3)
Quarter: 2025Q4

REPORT INFORMATION
  Report Type: Spontaneous
  Country: JP (occurrence: JP)
  Receive Date: 20251020
  Receipt Date: 20251112
  Transmission Date: 20260118
  Serious: Yes (Other)
  Sender: Unknown Manufacturer
  Company Number: JP-CORZA MEDICAL GMBH-2025-JP-002332

PATIENT

DRUGS (5)
  1. UNSPECIFIED INGREDIENT [Suspect]
     Active Substance: UNSPECIFIED INGREDIENT
     Indication: Product used for unknown indication
     Dosage: UNK
  2. BOLHEAL [Suspect]
     Active Substance: FACTOR XIII CONCENTRATE (HUMAN)\FIBRINOGEN HUMAN\HUMAN THROMBIN
     Indication: Intracranial aneurysm
     Dosage: UNK
     Route: 065
  3. FASUDIL HYDROCHLORIDE [Concomitant]
     Active Substance: FASUDIL HYDROCHLORIDE
     Indication: Product used for unknown indication
     Dosage: 60 MG/DAY
     Route: 065
  4. ASPIRIN [Concomitant]
     Active Substance: ASPIRIN
     Indication: Product used for unknown indication
     Dosage: 100 MG/DAY, PO
     Route: 048
  5. CILOSTAZOL [Concomitant]
     Active Substance: CILOSTAZOL
     Indication: Dysarthria
     Dosage: 100 MG/DAY, PO
     Route: 048

REACTIONS (1)
  - Cerebral vasoconstriction [Unknown]
